FAERS Safety Report 16129181 (Version 2)
Quarter: 2019Q2

REPORT INFORMATION
  Report Type: Spontaneous
  Country: JP (occurrence: JP)
  Receive Date: 20190328
  Receipt Date: 20190402
  Transmission Date: 20190711
  Serious: Yes (Hospitalization)
  Sender: FDA-Public Use
  Company Number: JP-ASTRAZENECA-2019SE46845

PATIENT

DRUGS (4)
  1. LYNPARZA [Suspect]
     Active Substance: OLAPARIB
     Route: 048
  2. LYNPARZA [Suspect]
     Active Substance: OLAPARIB
     Route: 048
  3. GRANISETRON [Suspect]
     Active Substance: GRANISETRON
     Route: 048
  4. LYNPARZA [Suspect]
     Active Substance: OLAPARIB
     Route: 048

REACTIONS (6)
  - Vomiting [Unknown]
  - Anaemia [Unknown]
  - Decreased appetite [Unknown]
  - Malaise [Unknown]
  - Ileus [Unknown]
  - Nausea [Unknown]
